FAERS Safety Report 4548919-5 (Version None)
Quarter: 2004Q4

REPORT INFORMATION
  Report Type: 
  Country: None (occurrence: None)
  Receive Date: 20041227
  Receipt Date: 20041122
  Transmission Date: 20050328
  Serious: No
  Sender: FDA-Public Use
  Company Number: 04P-163-0281229-00

PATIENT
  Age: 75 Year
  Sex: Female
  Weight: 83.9154 kg

DRUGS (11)
  1. HUMIRA [Suspect]
     Indication: RHEUMATOID ARTHRITIS
     Dosage: 40 MG, 1 IN 2 WK, SUBCUTANEOUS
     Route: 058
     Dates: start: 20020201
  2. ATENOLOL [Concomitant]
  3. LISINOPRIL [Concomitant]
  4. FUROSEMIDE [Concomitant]
  5. METFORMIN HCL [Concomitant]
  6. QUINAPRIL HYDROCHLORIDE [Concomitant]
  7. ACETYLSALICYLIC ACID SRT [Concomitant]
  8. MULTI-VITAMINS [Concomitant]
  9. CALCIUM GLUCONATE [Concomitant]
  10. METHOTREXATE SODIUM [Concomitant]
  11. FOLIC ACID [Concomitant]

REACTIONS (1)
  - TEMPORAL ARTERITIS [None]
